FAERS Safety Report 4718512-X (Version None)
Quarter: 2005Q3

REPORT INFORMATION
  Report Type: 
  Country: None (occurrence: None)
  Receive Date: 20050719
  Receipt Date: 20041221
  Transmission Date: 20060218
  Serious: Yes (Other)
  Sender: FDA-Public Use
  Company Number: 2004119068

PATIENT
  Age: 23 Year
  Sex: Male
  Weight: 104.3273 kg

DRUGS (4)
  1. CELEBREX [Suspect]
     Indication: BACK PAIN
     Dosage: 400 MG (200 MG, 2 IN 1 D), ORAL
     Route: 048
     Dates: start: 20041210, end: 20041217
  2. VICODIN [Concomitant]
  3. METHOCARBAMOL [Concomitant]
  4. IBUPROFEN [Concomitant]

REACTIONS (4)
  - CHEST PAIN [None]
  - COLD SWEAT [None]
  - HEART RATE INCREASED [None]
  - HYPOAESTHESIA [None]
